FAERS Safety Report 8505838 (Version 4)
Quarter: 2012Q4

REPORT INFORMATION
  Report Type: 
  Country: BR (occurrence: BR)
  Receive Date: 20120412
  Receipt Date: 20121219
  Transmission Date: 20130627
  Serious: Yes (Death, Other)
  Sender: FDA-Public Use
  Company Number: BR-RANBAXY-2012R5-55386

PATIENT

DRUGS (4)
  1. CEPHALEXIN [Suspect]
     Indication: WOUND INFECTION
     Dosage: 500 mg, tid
     Route: 048
     Dates: start: 20120322, end: 20120323
  2. APRESOLINA [Concomitant]
     Indication: HYPERTENSION
     Dosage: 25 mg, qd
     Route: 065
  3. HYDROMET [Concomitant]
     Indication: HYPERTENSION
     Dosage: UNK
     Route: 065
  4. HYDROMET / METHYLDOPA + HYDROCHLOROTHIAZIDE [Concomitant]

REACTIONS (7)
  - Skin exfoliation [Recovering/Resolving]
  - Erythema [Recovered/Resolved]
  - Pruritus generalised [Recovering/Resolving]
  - Swelling face [Recovered/Resolved]
  - Oedema peripheral [Recovered/Resolved]
  - Oedema peripheral [Recovered/Resolved]
  - Skin ulcer [Recovered/Resolved]
